FAERS Safety Report 7705373-X (Version None)
Quarter: 2011Q3

REPORT INFORMATION
  Report Type: 
  Country: None (occurrence: None)
  Receive Date: 20110823
  Receipt Date: 20110823
  Transmission Date: 20111222
  Serious: Yes (Other)
  Sender: FDA-Public Use
  Company Number: None

PATIENT
  Age: 59 Year
  Sex: Female

DRUGS (1)
  1. AZOPT [Suspect]
     Indication: GLAUCOMA
     Dosage: ONE DROP BOTH EYES THREE TIMES DAILY
     Dates: start: 20110701, end: 20110818

REACTIONS (2)
  - INTRAOCULAR PRESSURE INCREASED [None]
  - EYE IRRITATION [None]
